FAERS Safety Report 18830856 (Version 3)
Quarter: 2021Q3

REPORT INFORMATION
  Report Type: Report from Study
  Country: None (occurrence: US)
  Receive Date: 20210203
  Receipt Date: 20210716
  Transmission Date: 20211014
  Serious: Yes (Other)
  Sender: FDA-Public Use
  Company Number: US-ABBVIE-20K-163-3656858-00

PATIENT
  Age: 52 Year
  Sex: Female

DRUGS (3)
  1. HUMIRA [Suspect]
     Active Substance: ADALIMUMAB
     Route: 058
     Dates: start: 20210707
  2. HUMIRA [Suspect]
     Active Substance: ADALIMUMAB
     Indication: RHEUMATOID ARTHRITIS
     Route: 058
     Dates: start: 202010, end: 202105
  3. HUMIRA [Suspect]
     Active Substance: ADALIMUMAB
     Indication: RHEUMATOID ARTHRITIS
     Route: 058

REACTIONS (34)
  - Carpal tunnel syndrome [Unknown]
  - Joint stiffness [Not Recovered/Not Resolved]
  - Dyspnoea [Not Recovered/Not Resolved]
  - Arthralgia [Not Recovered/Not Resolved]
  - Joint swelling [Not Recovered/Not Resolved]
  - Intervertebral disc degeneration [Not Recovered/Not Resolved]
  - Rash [Not Recovered/Not Resolved]
  - Injection site erythema [Recovered/Resolved]
  - Loss of personal independence in daily activities [Recovering/Resolving]
  - Pelvic cyst [Not Recovered/Not Resolved]
  - Fatigue [Recovered/Resolved]
  - Gait disturbance [Recovering/Resolving]
  - Weight decreased [Unknown]
  - Depression [Not Recovered/Not Resolved]
  - Systemic lupus erythematosus [Unknown]
  - Visual impairment [Recovering/Resolving]
  - Sleep disorder [Not Recovered/Not Resolved]
  - Presbyopia [Unknown]
  - Pain [Recovering/Resolving]
  - Injection site papule [Recovered/Resolved]
  - Unevaluable event [Unknown]
  - Osteoarthritis [Not Recovered/Not Resolved]
  - Injection site induration [Recovered/Resolved]
  - Arthralgia [Recovered/Resolved]
  - Therapeutic response shortened [Recovering/Resolving]
  - Back pain [Unknown]
  - Mammogram abnormal [Unknown]
  - Musculoskeletal stiffness [Recovering/Resolving]
  - Frequent bowel movements [Recovered/Resolved]
  - Anxiety [Not Recovered/Not Resolved]
  - Pelvic pain [Not Recovered/Not Resolved]
  - Musculoskeletal discomfort [Recovering/Resolving]
  - Injection site reaction [Recovered/Resolved]
  - Limb discomfort [Unknown]

NARRATIVE: CASE EVENT DATE: 2020
